FAERS Safety Report 19453048 (Version 1)
Quarter: 2021Q2

REPORT INFORMATION
  Report Type: Spontaneous
  Country: JP (occurrence: JP)
  Receive Date: 20210623
  Receipt Date: 20210623
  Transmission Date: 20210717
  Serious: Yes (Other)
  Sender: FDA-Public Use
  Company Number: JP-GLAXOSMITHKLINE-JP2021132138

PATIENT
  Sex: Female

DRUGS (2)
  1. FLUTIFORM [Concomitant]
     Active Substance: FLUTICASONE PROPIONATE\FORMOTEROL FUMARATE
     Indication: ASTHMA
     Dosage: UNK,  4 INHALATIONS IN TOTAL, IN THE MORNING + AT NIGHT
     Route: 055
  2. RELVAR ELLIPTA [Suspect]
     Active Substance: FLUTICASONE FUROATE\VILANTEROL TRIFENATATE
     Indication: ASTHMA
     Dosage: UNK, QD, IN THE MORNING
     Dates: start: 20210611

REACTIONS (3)
  - Cough [Unknown]
  - Glaucoma [Unknown]
  - Lacrimation increased [Unknown]
